FAERS Safety Report 5105100-9 (Version None)
Quarter: 2006Q3

REPORT INFORMATION
  Report Type: 
  Country: None (occurrence: None)
  Receive Date: 20060911
  Receipt Date: 20060829
  Transmission Date: 20061208
  Serious: Yes (Other)
  Sender: FDA-Public Use
  Company Number: 2006105708

PATIENT
  Age: 56 Year
  Sex: Male
  Weight: 93.441 kg

DRUGS (7)
  1. NEURONTIN [Suspect]
     Indication: NERVE INJURY
     Dosage: 2400 MG (600 MG, 4 IN 1 D)
     Dates: start: 19990101
  2. NEXIUM [Concomitant]
  3. EFFEXOR [Concomitant]
  4. AMITRIPTYLINE HCL [Concomitant]
  5. OXYCONTIN [Concomitant]
  6. PERCOCET [Concomitant]
  7. METHADONE HCL [Concomitant]

REACTIONS (10)
  - ANDROGENS DECREASED [None]
  - DENTAL CARIES [None]
  - DRY MOUTH [None]
  - ERECTILE DYSFUNCTION [None]
  - GINGIVAL RECESSION [None]
  - HYPOTHALAMO-PITUITARY DISORDERS [None]
  - INSOMNIA [None]
  - LIBIDO DECREASED [None]
  - PENIS DISORDER [None]
  - TOOTH LOSS [None]
